FAERS Safety Report 4851850-9 (Version None)
Quarter: 2005Q4

REPORT INFORMATION
  Report Type: 
  Country: None (occurrence: None)
  Receive Date: 20051125
  Receipt Date: 20050106
  Transmission Date: 20060501
  Serious: Yes (Other)
  Sender: FDA-Public Use
  Company Number: 2005006613

PATIENT
  Age: 84 Year
  Sex: Male
  Weight: 102 kg

DRUGS (13)
  1. TIKOSYN [Suspect]
     Indication: ATRIAL FIBRILLATION
     Dosage: 1000 MCG (500 MCG, 2 IN 1 D), ORAL
     Route: 048
     Dates: start: 20050105
  2. FUROSEMIDE [Concomitant]
  3. CELECOXIB (CELECOXIB) [Concomitant]
  4. POTASSIUM (POTASSIUM) [Concomitant]
  5. WARFARIN SODIUM [Concomitant]
  6. DIGOXIN [Concomitant]
  7. ISOSORBIDE MONONITRATE [Concomitant]
  8. LISINOPRIL [Concomitant]
  9. DOXAZOSIN MESYLATE [Concomitant]
  10. PANTOPRAZOLE SODIUM [Concomitant]
  11. SIMVASTATIN [Concomitant]
  12. FINASTERIDE [Concomitant]
  13. SOTALOL HCL [Concomitant]

REACTIONS (3)
  - BLOOD CREATININE INCREASED [None]
  - CHEST PAIN [None]
  - ELECTROCARDIOGRAM QT CORRECTED INTERVAL PROLONGED [None]
